FAERS Safety Report 21150665 (Version 3)
Quarter: 2022Q4

REPORT INFORMATION
  Report Type: Spontaneous
  Country: US (occurrence: US)
  Receive Date: 20220729
  Receipt Date: 20221201
  Transmission Date: 20230113
  Serious: Yes (Hospitalization)
  Sender: FDA-Public Use
  Company Number: US-NOVOPROD-936979

PATIENT
  Sex: Female

DRUGS (1)
  1. OZEMPIC [Suspect]
     Active Substance: SEMAGLUTIDE
     Indication: Product used for unknown indication
     Dosage: 0.25 MG, QW
     Route: 058

REACTIONS (4)
  - Balance disorder [Unknown]
  - Fall [Recovered/Resolved]
  - Hypoaesthesia [Not Recovered/Not Resolved]
  - Muscular weakness [Not Recovered/Not Resolved]
